FAERS Safety Report 6414229-4 (Version None)
Quarter: 2009Q4

REPORT INFORMATION
  Report Type: 
  Country: None (occurrence: None)
  Receive Date: 20091026
  Receipt Date: 20091013
  Transmission Date: 20100525
  Serious: Yes (Other)
  Sender: FDA-Public Use
  Company Number: CHPA2009AR20423

PATIENT
  Age: 57 Year
  Sex: Female

DRUGS (2)
  1. NICOTINELL GUM (NCH) [Suspect]
     Indication: SMOKING CESSATION THERAPY
     Dosage: 2 GUMS OF 4 MG DAILY
     Dates: start: 20091011
  2. NICOTINELL TTS (NCH) [Suspect]
     Indication: SMOKING CESSATION THERAPY
     Dosage: 1 DF, QD
     Route: 062
     Dates: start: 20091011

REACTIONS (8)
  - APPLICATION SITE DISCOLOURATION [None]
  - APPLICATION SITE ERYTHEMA [None]
  - APPLICATION SITE VESICLES [None]
  - BLOOD GLUCOSE INCREASED [None]
  - DIZZINESS [None]
  - EXPIRED DRUG ADMINISTERED [None]
  - THROAT IRRITATION [None]
  - TREATMENT NONCOMPLIANCE [None]
